FAERS Safety Report 7672753-0 (Version None)
Quarter: 2011Q3

REPORT INFORMATION
  Report Type: 
  Country: None (occurrence: None)
  Receive Date: 20110804
  Receipt Date: 20110728
  Transmission Date: 20111222
  Serious: Yes (Other)
  Sender: FDA-Public Use
  Company Number: TRP_07857_2011

PATIENT
  Age: 46 Year
  Sex: Female

DRUGS (2)
  1. PEGINTERFERON ALFA-2A [Suspect]
     Indication: HEPATITIS C
     Dosage: (80 UG 1X/WEEK SUBCUTANEOUS)
     Route: 058
  2. RIBAVIRIN [Suspect]
     Indication: HEPATITIS C
     Dosage: (800 MG, DAILY ORAL)
     Route: 048

REACTIONS (6)
  - INJECTION SITE REACTION [None]
  - ANTI-THYROID ANTIBODY POSITIVE [None]
  - PSORIASIS [None]
  - INFLUENZA LIKE ILLNESS [None]
  - HYPOTHYROIDISM [None]
  - ALOPECIA [None]
